FAERS Safety Report 5757877-7 (Version None)
Quarter: 2008Q2

REPORT INFORMATION
  Report Type: 
  Country: None (occurrence: None)
  Receive Date: 20080519
  Receipt Date: 20080519
  Transmission Date: 20081010
  Serious: Yes (Hospitalization)
  Sender: FDA-Public Use
  Company Number: None

PATIENT
  Age: 44 Year
  Sex: Female
  Weight: 61.2356 kg

DRUGS (3)
  1. ZOLOFT [Suspect]
     Indication: ANXIETY
     Dosage: 50MG INITIALLY ONCE PER DAY PO 25 MG AFTER FIRST DOSE DAILY PO
     Route: 048
     Dates: start: 20061006, end: 20061016
  2. ZOLOFT [Suspect]
     Indication: OBSESSIVE-COMPULSIVE DISORDER
     Dosage: 50MG INITIALLY ONCE PER DAY PO 25 MG AFTER FIRST DOSE DAILY PO
     Route: 048
     Dates: start: 20061006, end: 20061016
  3. CELEXA [Concomitant]

REACTIONS (20)
  - ABASIA [None]
  - ANXIETY [None]
  - APHASIA [None]
  - BLOOD PRESSURE INCREASED [None]
  - CONVERSION DISORDER [None]
  - CONVULSION [None]
  - DEPRESSION [None]
  - DYSPHEMIA [None]
  - EYE MOVEMENT DISORDER [None]
  - GAIT DISTURBANCE [None]
  - HEADACHE [None]
  - MUSCLE TWITCHING [None]
  - MUSCULAR WEAKNESS [None]
  - MYOCLONUS [None]
  - NAUSEA [None]
  - PARAESTHESIA [None]
  - SEROTONIN SYNDROME [None]
  - SPEECH DISORDER [None]
  - STRESS [None]
  - VISION BLURRED [None]
